FAERS Safety Report 6229194-2 (Version None)
Quarter: 2009Q2

REPORT INFORMATION
  Report Type: 
  Country: None (occurrence: None)
  Receive Date: 20090615
  Receipt Date: 20090316
  Transmission Date: 20091009
  Serious: No
  Sender: FDA-Public Use
  Company Number: US-BAYER-200916145NA

PATIENT
  Age: 28 Year
  Sex: Female

DRUGS (1)
  1. MIRENA [Suspect]
     Indication: MENSTRUAL CYCLE MANAGEMENT
     Dosage: CONTINUOUS DELIVERY
     Route: 015
     Dates: start: 20090316

REACTIONS (2)
  - IUCD COMPLICATION [None]
  - MEDICAL DEVICE PAIN [None]
